FAERS Safety Report 6793026-4 (Version None)
Quarter: 2010Q2

REPORT INFORMATION
  Report Type: 
  Country: None (occurrence: None)
  Receive Date: 20100624
  Receipt Date: 20081110
  Transmission Date: 20101027
  Serious: No
  Sender: FDA-Public Use
  Company Number: US-PFIZER INC-2008095795

PATIENT
  Sex: Male
  Weight: 75 kg

DRUGS (1)
  1. GEODON [Suspect]
     Indication: DELUSION
     Dates: start: 20060101

REACTIONS (3)
  - NIGHTMARE [None]
  - TESTICULAR DISORDER [None]
  - TESTIS DISCOMFORT [None]
